FAERS Safety Report 7295391-0 (Version None)
Quarter: 2011Q1

REPORT INFORMATION
  Report Type: 
  Country: None (occurrence: None)
  Receive Date: 20110216
  Receipt Date: 20110117
  Transmission Date: 20110831
  Serious: No
  Sender: FDA-Public Use
  Company Number: US-ABBOTT-11P-163-0697806-00

PATIENT
  Sex: Male
  Weight: 106.24 kg

DRUGS (7)
  1. PLAVIX [Concomitant]
     Indication: PRODUCT USED FOR UNKNOWN INDICATION
     Dosage: IN THE MORNING
  2. UNKNOWN MEDICATIONS [Concomitant]
     Indication: ANXIETY
  3. UNKNOWN MEDICATIONS [Concomitant]
     Indication: ABDOMINAL PAIN UPPER
  4. UNKNOWN MEDICATIONS [Concomitant]
     Indication: HYPERTENSION
  5. UNKNOWN MEDICATIONS [Concomitant]
     Indication: BLOOD POTASSIUM
  6. SIMCOR [Suspect]
     Indication: STENT PLACEMENT
     Dosage: 1000/20 MG AT BEDTIME
     Dates: start: 20090301
  7. ASPIRIN [Concomitant]
     Indication: PRODUCT USED FOR UNKNOWN INDICATION

REACTIONS (3)
  - ERYTHEMA [None]
  - PRURITUS GENERALISED [None]
  - FEELING HOT [None]
